FAERS Safety Report 7313430-5 (Version None)
Quarter: 2011Q1

REPORT INFORMATION
  Report Type: 
  Country: None (occurrence: None)
  Receive Date: 20110225
  Receipt Date: 20110221
  Transmission Date: 20110831
  Serious: No
  Sender: FDA-Public Use
  Company Number: US-PFIZER INC-2011037964

PATIENT
  Sex: Female
  Weight: 108.84 kg

DRUGS (1)
  1. DETROL LA [Suspect]
     Indication: BLADDER DISORDER
     Dosage: UNK
     Route: 048
     Dates: start: 20110101, end: 20110101

REACTIONS (1)
  - PRURITUS [None]
